FAERS Safety Report 14598556 (Version 1)
Quarter: 2018Q1

REPORT INFORMATION
  Report Type: Spontaneous
  Country: US (occurrence: US)
  Receive Date: 20180302
  Receipt Date: 20180302
  Transmission Date: 20180509
  Serious: Yes (Other)
  Sender: FDA-Public Use
  Company Number: None

PATIENT
  Age: 65 Year
  Sex: Male

DRUGS (1)
  1. EYLEA [Suspect]
     Active Substance: AFLIBERCEPT
     Indication: NEOVASCULAR AGE-RELATED MACULAR DEGENERATION
     Dosage: ?          OTHER FREQUENCY:EVERY 10-11 WEEKS;OTHER ROUTE:INTRAVITREAL?
     Dates: start: 20151230, end: 20180207

REACTIONS (3)
  - Vitreous floaters [None]
  - Visual acuity reduced [None]
  - Injection site pain [None]

NARRATIVE: CASE EVENT DATE: 20180207
